FAERS Safety Report 9940506 (Version 2)
Quarter: 2014Q1

REPORT INFORMATION
  Report Type: Spontaneous
  Country: BR (occurrence: BR)
  Receive Date: 20140303
  Receipt Date: 20140319
  Transmission Date: 20141002
  Serious: Yes (Other)
  Sender: FDA-Public Use
  Company Number: BR-PFIZER INC-2014056877

PATIENT
  Age: 78 Year
  Sex: Female
  Weight: 65.7 kg

DRUGS (2)
  1. FRONTAL [Suspect]
     Indication: DEPRESSION
     Dosage: 0.5 MG, 1X/DAY
     Route: 048
     Dates: start: 20090226
  2. DONAREN RETARD [Concomitant]
     Indication: DEPRESSION
     Dosage: 150 MG, 1X/DAY
     Dates: start: 2000

REACTIONS (3)
  - Rectal cancer [Unknown]
  - Depression [Unknown]
  - Abasia [Not Recovered/Not Resolved]
